FAERS Safety Report 18832769 (Version 1)
Quarter: 2021Q1

REPORT INFORMATION
  Report Type: Report from Study
  Country: US (occurrence: US)
  Receive Date: 20210203
  Receipt Date: 20210203
  Transmission Date: 20210419
  Serious: Yes (Other)
  Sender: FDA-Public Use
  Company Number: US-ASTELLAS-2020US028866

PATIENT
  Age: 69 Year
  Sex: Male

DRUGS (3)
  1. ENZALUTAMIDE [Suspect]
     Active Substance: ENZALUTAMIDE
     Route: 065
  2. ENZALUTAMIDE [Suspect]
     Active Substance: ENZALUTAMIDE
     Indication: PRODUCT USED FOR UNKNOWN INDICATION
     Route: 065
     Dates: start: 20200821
  3. ENZALUTAMIDE [Suspect]
     Active Substance: ENZALUTAMIDE
     Route: 065

REACTIONS (6)
  - Renal haemorrhage [Unknown]
  - Pain [Unknown]
  - Urinary bladder haemorrhage [Unknown]
  - Underdose [Unknown]
  - Blood urine present [Unknown]
  - Fatigue [Unknown]

NARRATIVE: CASE EVENT DATE: 20200821
